FAERS Safety Report 21173793 (Version 1)
Quarter: 2022Q3

REPORT INFORMATION
  Report Type: Spontaneous
  Country: US (occurrence: US)
  Receive Date: 20220804
  Receipt Date: 20220804
  Transmission Date: 20221027
  Serious: No
  Sender: FDA-Public Use
  Company Number: US-PERRIGO-22US003650

PATIENT
  Age: 81 Year
  Sex: Female
  Weight: 50.794 kg

DRUGS (5)
  1. LORATADINE [Suspect]
     Active Substance: LORATADINE
     Indication: Eye pruritus
     Dosage: 10 MG, PRN
     Route: 048
     Dates: end: 20220303
  2. LORATADINE [Suspect]
     Active Substance: LORATADINE
     Indication: Throat irritation
  3. LORATADINE [Suspect]
     Active Substance: LORATADINE
     Indication: Sneezing
  4. LORATADINE [Suspect]
     Active Substance: LORATADINE
     Indication: Seasonal allergy
  5. LEVOTHYROXINE [Concomitant]
     Active Substance: LEVOTHYROXINE
     Indication: Hypothyroidism
     Dosage: 88 MCG
     Route: 065
     Dates: start: 2019

REACTIONS (2)
  - Drug ineffective [Unknown]
  - Expired product administered [Recovered/Resolved]

NARRATIVE: CASE EVENT DATE: 20220302
